FAERS Safety Report 8838330 (Version 3)
Quarter: 2013Q3

REPORT INFORMATION
  Report Type: Spontaneous
  Country: BR (occurrence: BR)
  Receive Date: 20121012
  Receipt Date: 20130920
  Transmission Date: 20140515
  Serious: Yes (Hospitalization)
  Sender: FDA-Public Use
  Company Number: PHHY2012BR088453

PATIENT
  Age: 45 Year
  Sex: Female

DRUGS (5)
  1. OXCARBAZEPINE [Suspect]
  2. CLONAZEPAM [Suspect]
  3. PROMETHAZINE [Suspect]
  4. QUETIAPINE [Suspect]
  5. PHENOBARBITAL [Suspect]

REACTIONS (10)
  - Unresponsive to stimuli [Recovered/Resolved]
  - Miosis [Recovered/Resolved]
  - Blood pressure decreased [Recovered/Resolved]
  - Coma blister [Recovered/Resolved]
  - Dermatitis bullous [Recovered/Resolved]
  - Epidermal necrosis [Recovered/Resolved]
  - Coma [Recovered/Resolved]
  - Rhabdomyolysis [Recovered/Resolved]
  - Toxicity to various agents [Recovered/Resolved]
  - Intentional overdose [Recovered/Resolved]
